FAERS Safety Report 5519406-2 (Version None)
Quarter: 2007Q4

REPORT INFORMATION
  Report Type: 
  Country: None (occurrence: None)
  Receive Date: 20071116
  Receipt Date: 20071109
  Transmission Date: 20080405
  Serious: Yes (Hospitalization, Other)
  Sender: FDA-Public Use
  Company Number: HQWYE976612JUL04

PATIENT
  Sex: Female

DRUGS (3)
  1. PREMPRO/PREMPHASE [Suspect]
     Indication: HORMONE REPLACEMENT THERAPY
     Dosage: UNSPECIFIED
     Route: 048
     Dates: start: 20010829, end: 20030422
  2. PREMARIN [Suspect]
     Indication: HORMONE REPLACEMENT THERAPY
     Dosage: UNSPECIFIED
     Route: 048
     Dates: start: 20010829, end: 20010906
  3. PREMARIN [Suspect]
     Dosage: UNSPECIFIED
     Route: 048

REACTIONS (1)
  - DEEP VEIN THROMBOSIS [None]
